FAERS Safety Report 7299779-3 (Version None)
Quarter: 2011Q1

REPORT INFORMATION
  Report Type: 
  Country: None (occurrence: None)
  Receive Date: 20110208
  Receipt Date: 20110127
  Transmission Date: 20110831
  Serious: Yes (Hospitalization, Other)
  Sender: FDA-Public Use
  Company Number: 026297

PATIENT
  Sex: Male
  Weight: 33.4 kg

DRUGS (1)
  1. CERTOLIZUMAB PEGOL (CERTOLIZUMAB PEGOL) [Suspect]
     Indication: CROHN'S DISEASE
     Dosage: 200 MG, 1X/4 WEEKS, SUBCUTANEOUS
     Route: 058
     Dates: start: 20101202, end: 20101230

REACTIONS (7)
  - HAEMATOCRIT DECREASED [None]
  - HYPOPHAGIA [None]
  - BLOOD ALKALINE PHOSPHATASE DECREASED [None]
  - HAEMOGLOBIN DECREASED [None]
  - BLOOD ALBUMIN DECREASED [None]
  - ANAL ABSCESS [None]
  - PROCTALGIA [None]
